FAERS Safety Report 7487800-9 (Version None)
Quarter: 2011Q2

REPORT INFORMATION
  Report Type: 
  Country: None (occurrence: None)
  Receive Date: 20110518
  Receipt Date: 20110513
  Transmission Date: 20111010
  Serious: No
  Sender: FDA-Public Use
  Company Number: US-B.I. PHARMACEUTICALS,INC./RIDGEFIELD-2011-BP-06159BP

PATIENT
  Sex: Female

DRUGS (7)
  1. LISINOPRIL [Concomitant]
     Indication: HYPERTENSION
     Route: 048
  2. CHOLESTRA [Concomitant]
     Route: 048
     Dates: start: 20110401
  3. NORVASC [Concomitant]
     Indication: HYPERTENSION
  4. NORVASC [Concomitant]
     Indication: CARDIAC DISORDER
     Route: 048
  5. NORVASC [Concomitant]
     Route: 048
  6. PRADAXA [Suspect]
     Indication: ATRIAL FIBRILLATION
     Dosage: 300 MG
     Route: 048
     Dates: start: 20110111
  7. FIBER CAPS [Concomitant]
     Indication: HYPERTENSION
     Route: 048
     Dates: start: 20110401

REACTIONS (8)
  - DIARRHOEA [None]
  - FLATULENCE [None]
  - RECTAL HAEMORRHAGE [None]
  - FALL [None]
  - GASTROOESOPHAGEAL REFLUX DISEASE [None]
  - OEDEMA PERIPHERAL [None]
  - JOINT SWELLING [None]
  - LACERATION [None]
